FAERS Safety Report 4752956-5 (Version None)
Quarter: 2005Q3

REPORT INFORMATION
  Report Type: 
  Country: None (occurrence: None)
  Receive Date: 20050823
  Receipt Date: 20050808
  Transmission Date: 20060218
  Serious: Yes (Hospitalization)
  Sender: FDA-Public Use
  Company Number: USA050495507

PATIENT
  Age: 80 Year
  Sex: Female

DRUGS (9)
  1. FORTEO [Suspect]
     Indication: OSTEOPOROSIS
     Dates: start: 20050301
  2. PLETAL [Concomitant]
  3. TIMOPTIC [Concomitant]
  4. XALATAN [Concomitant]
  5. PLAQUENIL [Concomitant]
  6. MICROZIDE [Concomitant]
  7. ASPIRIN [Concomitant]
  8. VITAMIN D [Concomitant]
  9. MULTI-VITAMIN [Concomitant]

REACTIONS (8)
  - CHEST DISCOMFORT [None]
  - CONSTIPATION [None]
  - DRUG DOSE OMISSION [None]
  - GASTRIC DISORDER [None]
  - HYPERHIDROSIS [None]
  - MEDICAL DEVICE COMPLICATION [None]
  - NAUSEA [None]
  - PHARMACEUTICAL PRODUCT COMPLAINT [None]
